FAERS Safety Report 22235183 (Version 1)
Quarter: 2023Q2

REPORT INFORMATION
  Report Type: Spontaneous
  Country: CN (occurrence: CN)
  Receive Date: 20230420
  Receipt Date: 20230420
  Transmission Date: 20230722
  Serious: Yes (Hospitalization)
  Sender: FDA-Public Use
  Company Number: CN-SUN PHARMACEUTICAL INDUSTRIES LTD-2023R1-385885

PATIENT
  Age: 61 Year
  Sex: Female

DRUGS (3)
  1. DOCETAXEL [Suspect]
     Active Substance: DOCETAXEL
     Indication: Vulval cancer
     Dosage: 2 CYCLES
     Route: 065
     Dates: start: 201801
  2. DACARBAZINE [Suspect]
     Active Substance: DACARBAZINE
     Indication: Vulval cancer
     Dosage: 2 CYCLES
     Route: 065
     Dates: start: 201801
  3. NEDAPLATIN [Suspect]
     Active Substance: NEDAPLATIN
     Indication: Vulval cancer
     Dosage: 2 CYCLES
     Route: 065
     Dates: start: 201801

REACTIONS (1)
  - Disease progression [Unknown]
